FAERS Safety Report 24881278 (Version 4)
Quarter: 2025Q4

REPORT INFORMATION
  Report Type: Report from Study
  Country: CA (occurrence: CA)
  Receive Date: 20250124
  Receipt Date: 20251201
  Transmission Date: 20260118
  Serious: Yes (Other)
  Sender: BIOCON
  Company Number: CA-MYLANLABS-2023M1125965

PATIENT

DRUGS (2)
  1. HULIO [Suspect]
     Active Substance: ADALIMUMAB-FKJP
     Indication: Hidradenitis
     Dosage: 40 MILLIGRAM, QW, EVERY 7 DAYS
     Route: 058
     Dates: start: 20231123
  2. HULIO [Suspect]
     Active Substance: ADALIMUMAB-FKJP

REACTIONS (8)
  - Seizure [Unknown]
  - Asthma [Unknown]
  - Hypertension [Unknown]
  - Injection site haemorrhage [Unknown]
  - Injection site pain [Unknown]
  - Psoriasis [Unknown]
  - Product administered at inappropriate site [Unknown]
  - Lack of injection site rotation [Unknown]
